FAERS Safety Report 8272901-8 (Version None)
Quarter: 2012Q2

REPORT INFORMATION
  Report Type: 
  Country: None (occurrence: None)
  Receive Date: 20120411
  Receipt Date: 20120406
  Transmission Date: 20120825
  Serious: Yes (Hospitalization)
  Sender: FDA-Public Use
  Company Number: US-SP-2012-03771

PATIENT
  Sex: Female

DRUGS (1)
  1. TUBERCULIN NOS [Suspect]
     Indication: TUBERCULIN TEST
     Route: 065
     Dates: start: 20100101, end: 20100101

REACTIONS (3)
  - COUGH [None]
  - HYPOAESTHESIA [None]
  - INJECTION SITE PAIN [None]
